FAERS Safety Report 11525441 (Version 1)
Quarter: 2015Q3

REPORT INFORMATION
  Report Type: Report from Study
  Country: BR (occurrence: BR)
  Receive Date: 20150918
  Receipt Date: 20150918
  Transmission Date: 20151125
  Serious: Yes (Other)
  Sender: FDA-Public Use
  Company Number: BR-ABBVIE-15K-020-1465187-00

PATIENT
  Age: 26 Year
  Sex: Female
  Weight: 54 kg

DRUGS (2)
  1. LACTOBACILLUS NOS [Concomitant]
     Indication: GASTROINTESTINAL DISORDER
     Dosage: 1,000000000 COLONY FORMING UNITS (AS REPORTED)
     Route: 048
     Dates: start: 201508
  2. HUMIRA [Suspect]
     Active Substance: ADALIMUMAB
     Indication: CROHN^S DISEASE
     Route: 058
     Dates: start: 20140714

REACTIONS (2)
  - Pain [Recovered/Resolved]
  - Colectomy [Recovered/Resolved]

NARRATIVE: CASE EVENT DATE: 201502
